FAERS Safety Report 6155979-7 (Version None)
Quarter: 2009Q2

REPORT INFORMATION
  Report Type: 
  Country: None (occurrence: None)
  Receive Date: 20090415
  Receipt Date: 20090409
  Transmission Date: 20091009
  Serious: Yes (Other)
  Sender: FDA-Public Use
  Company Number: US-ASTRAZENECA-2009UW08964

PATIENT
  Age: 75 Year
  Sex: Female

DRUGS (7)
  1. CRESTOR [Suspect]
     Route: 048
  2. LISINOPRIL [Concomitant]
     Route: 048
  3. ZETIA [Concomitant]
     Indication: BLOOD CHOLESTEROL INCREASED
  4. ASPIRIN [Concomitant]
  5. ALPRAZOLAM [Concomitant]
     Indication: ANXIETY
  6. LASIX [Concomitant]
     Indication: HYPERTENSION
  7. COREG [Concomitant]
     Indication: HYPERTENSION

REACTIONS (3)
  - BACK PAIN [None]
  - DIZZINESS [None]
  - PAIN IN EXTREMITY [None]
